FAERS Safety Report 16416630 (Version 1)
Quarter: 2019Q2

REPORT INFORMATION
  Report Type: Spontaneous
  Country: JP (occurrence: JP)
  Receive Date: 20190611
  Receipt Date: 20190611
  Transmission Date: 20190711
  Serious: Yes (Other)
  Sender: FDA-Public Use
  Company Number: JP-PFIZER INC-2018535768

PATIENT
  Age: 7 Decade
  Sex: Female

DRUGS (1)
  1. LORBRENA [Suspect]
     Active Substance: LORLATINIB
     Indication: NON-SMALL CELL LUNG CANCER
     Dosage: 100 MG, DAILY
     Route: 048
     Dates: start: 20181205

REACTIONS (4)
  - Delirium [Recovering/Resolving]
  - Aggression [Recovering/Resolving]
  - Hypercholesterolaemia [Unknown]
  - Hypertriglyceridaemia [Unknown]

NARRATIVE: CASE EVENT DATE: 20181208
